FAERS Safety Report 23443784 (Version 1)
Quarter: 2024Q1

REPORT INFORMATION
  Report Type: Spontaneous
  Country: US (occurrence: None)
  Receive Date: 20240125
  Receipt Date: 20240125
  Transmission Date: 20240409
  Serious: Yes (Other)
  Sender: FDA-Public Use
  Company Number: None

PATIENT
  Sex: Female

DRUGS (8)
  1. CAPECITABINE [Suspect]
     Active Substance: CAPECITABINE
     Indication: Rectal cancer
     Route: 048
  2. HYDROCORT AC SUP 25MG [Concomitant]
  3. HYDROCORTISO CRE 2.5% [Concomitant]
  4. HYDROMORPHON TAB 2MG [Concomitant]
  5. ONDANSETRON TAB 8MG ODT [Concomitant]
  6. OXYCOD/APAP TAB 5-325MG [Concomitant]
  7. PREDNISONE TAB 10MG [Concomitant]
  8. TRAMADOL HCL TAB 50MG [Concomitant]

REACTIONS (2)
  - Liver operation [None]
  - Therapy interrupted [None]
